FAERS Safety Report 8819042 (Version 1)
Quarter: 2012Q4

REPORT INFORMATION
  Report Type: Report from Study
  Country: US (occurrence: US)
  Receive Date: 20121001
  Receipt Date: 20121001
  Transmission Date: 20130627
  Serious: Yes (Other)
  Sender: FDA-Public Use
  Company Number: US-JNJFOC-20120910363

PATIENT
  Sex: Male
  Weight: 73.94 kg

DRUGS (7)
  1. XARELTO [Suspect]
     Indication: ATRIAL FIBRILLATION
     Route: 048
     Dates: start: 201209
  2. BABY ASPIRIN [Concomitant]
     Indication: CORONARY ARTERY OCCLUSION
     Route: 048
     Dates: start: 2011
  3. NIASPAN [Concomitant]
     Indication: HIGH DENSITY LIPOPROTEIN
     Route: 048
     Dates: start: 2008
  4. FOLIC ACID [Concomitant]
     Indication: HYPERTENSION
     Route: 048
     Dates: start: 2007
  5. CRESTOR [Concomitant]
     Indication: CARDIAC DISORDER
     Route: 048
     Dates: start: 2010
  6. GARLIC [Concomitant]
     Indication: MEDICAL DIET
     Route: 048
     Dates: start: 201203, end: 201209
  7. OTHER THERAPEUTIC MEDICATIONS [Concomitant]
     Indication: BENIGN PROSTATIC HYPERPLASIA
     Route: 048
     Dates: start: 2011

REACTIONS (4)
  - Neuropathy peripheral [Not Recovered/Not Resolved]
  - Pollakiuria [Recovering/Resolving]
  - Inappropriate schedule of drug administration [Not Recovered/Not Resolved]
  - Therapeutic response unexpected [Not Recovered/Not Resolved]
